FAERS Safety Report 6610158-1 (Version None)
Quarter: 2010Q1

REPORT INFORMATION
  Report Type: 
  Country: None (occurrence: None)
  Receive Date: 20100302
  Receipt Date: 20100218
  Transmission Date: 20100710
  Serious: Yes (Hospitalization)
  Sender: FDA-Public Use
  Company Number: ES-PFIZER INC-2010021422

PATIENT
  Age: 68 Year
  Sex: Male

DRUGS (10)
  1. ZYVOXID [Suspect]
     Dosage: 600 MG, 2X/DAY
     Route: 048
     Dates: start: 20081008, end: 20081011
  2. TAVANIC [Suspect]
     Dosage: 750 MG, 1X/DAY
     Route: 048
     Dates: start: 20081008, end: 20081011
  3. TOBRAMYCIN [Concomitant]
  4. GENTAMICIN [Concomitant]
  5. ADIRO [Concomitant]
     Route: 048
  6. HEMOVAS [Concomitant]
     Route: 048
  7. HIBOR [Concomitant]
     Route: 058
  8. NEURONTIN [Concomitant]
     Route: 048
  9. NOLOTIL /SPA/ [Concomitant]
  10. ZOCOR [Concomitant]
     Route: 048

REACTIONS (2)
  - TOXIC EPIDERMAL NECROLYSIS [None]
  - TOXIC SKIN ERUPTION [None]
